FAERS Safety Report 6749386-3 (Version None)
Quarter: 2010Q2

REPORT INFORMATION
  Report Type: 
  Country: None (occurrence: None)
  Receive Date: 20100601
  Receipt Date: 20100521
  Transmission Date: 20101027
  Serious: Yes (Death, Other)
  Sender: FDA-Public Use
  Company Number: JP-ROCHE-702748

PATIENT
  Sex: Male
  Weight: 52 kg

DRUGS (10)
  1. AVASTIN [Suspect]
     Indication: LUNG ADENOCARCINOMA METASTATIC
     Route: 041
     Dates: start: 20100428, end: 20100428
  2. PACLITAXEL [Suspect]
     Indication: LUNG ADENOCARCINOMA METASTATIC
     Route: 041
     Dates: start: 20100428, end: 20100428
  3. PARAPLATIN [Suspect]
     Indication: LUNG ADENOCARCINOMA METASTATIC
     Route: 041
     Dates: start: 20100428, end: 20100428
  4. LOXONIN [Concomitant]
     Dosage: STOP DATE: 2010, DOSE FORM: PERORAL AGENT.
     Route: 048
     Dates: start: 20100405
  5. CLEANAL [Concomitant]
     Dosage: STOP DATE: 2010
     Route: 048
     Dates: start: 20100405
  6. MUCOSTA [Concomitant]
     Dosage: STOP DATE: 2010, DOSE FORM: PERORAL AGENT.
     Route: 048
     Dates: start: 20100405
  7. MAGMITT [Concomitant]
     Dosage: STOP DATE: 2010
     Route: 048
     Dates: start: 20100412
  8. DUROTEP [Concomitant]
     Dosage: STOP DATE: 2010, NOTE: 8.4 MG-16.8 MG.
     Route: 062
     Dates: start: 20100414
  9. PROCHLORPERAZINE [Concomitant]
     Dosage: STOP DATE: 2010
     Route: 048
     Dates: start: 20100427
  10. FIRSTCIN [Concomitant]
     Route: 042
     Dates: start: 20100428, end: 20100502

REACTIONS (3)
  - DYSPNOEA [None]
  - RENAL FAILURE [None]
  - WHITE BLOOD CELL COUNT INCREASED [None]
